FAERS Safety Report 5479496-2 (Version None)
Quarter: 2007Q3

REPORT INFORMATION
  Report Type: 
  Country: None (occurrence: None)
  Receive Date: 20070913
  Receipt Date: 20070620
  Transmission Date: 20080115
  Serious: Yes (Other)
  Sender: FDA-Public Use
  Company Number: 38309

PATIENT
  Age: 58 Year
  Sex: Female
  Weight: 92.9874 kg

DRUGS (2)
  1. PACLITAXEL [Suspect]
     Indication: OVARIAN EPITHELIAL CANCER
     Dosage: 156MG/IV
     Route: 042
     Dates: start: 20070620
  2. CARBOPLATIN [Concomitant]

REACTIONS (3)
  - BACK PAIN [None]
  - MUSCLE SPASMS [None]
  - PAIN [None]
